FAERS Safety Report 5360222-2 (Version None)
Quarter: 2007Q2

REPORT INFORMATION
  Report Type: 
  Country: None (occurrence: None)
  Receive Date: 20070530
  Receipt Date: 20070210
  Transmission Date: 20071010
  Serious: No
  Sender: FDA-Public Use
  Company Number: 2007PV029907

PATIENT
  Age: 29 Year
  Sex: Female

DRUGS (2)
  1. BYETTA [Suspect]
     Indication: POLYCYSTIC OVARIES
     Dosage: 5 MCG; BID; SC
     Route: 058
     Dates: start: 20070205
  2. METFORMIN HCL [Concomitant]

REACTIONS (4)
  - ABDOMINAL DISTENSION [None]
  - CHILLS [None]
  - FEELING COLD [None]
  - OESOPHAGEAL PAIN [None]
